FAERS Safety Report 13854088 (Version 1)
Quarter: 2017Q3

REPORT INFORMATION
  Report Type: Spontaneous
  Country: IT (occurrence: IT)
  Receive Date: 20170809
  Receipt Date: 20170809
  Transmission Date: 20171127
  Serious: Yes (Hospitalization)
  Sender: FDA-Public Use
  Company Number: IT-IMPAX LABORATORIES, INC-2017-IPXL-02386

PATIENT
  Age: 38 Year
  Sex: Female

DRUGS (3)
  1. CARBIDOPA-LEVODOPA ER [Suspect]
     Active Substance: CARBIDOPA\LEVODOPA
     Indication: PARKINSON^S DISEASE
     Dosage: 25/100 MG, 3 /DAY
     Route: 065
  2. ENTACAPONE. [Concomitant]
     Active Substance: ENTACAPONE
     Indication: PARKINSON^S DISEASE
     Dosage: 200 MG, 2 /DAY
     Route: 065
  3. LEVODOPA BENSERAZIDE [Suspect]
     Active Substance: BENSERAZIDE\LEVODOPA
     Indication: PARKINSON^S DISEASE
     Dosage: 100/25 MG, DAILY
     Route: 065

REACTIONS (5)
  - Vaginal haemorrhage [Recovered/Resolved]
  - Exposure during pregnancy [Unknown]
  - Motor dysfunction [Recovered/Resolved]
  - Accident at home [Recovered/Resolved]
  - Therapeutic response shortened [Recovered/Resolved]
